FAERS Safety Report 15263394 (Version 1)
Quarter: 2018Q3

REPORT INFORMATION
  Report Type: Spontaneous
  Country: FI (occurrence: FI)
  Receive Date: 20180810
  Receipt Date: 20180810
  Transmission Date: 20181010
  Serious: Yes (Hospitalization)
  Sender: FDA-Public Use
  Company Number: FI-TEVA-2018-FI-937183

PATIENT
  Age: 30 Year
  Sex: Male

DRUGS (3)
  1. LAMOTRIGIN [Suspect]
     Active Substance: LAMOTRIGINE
     Indication: DEPRESSION
     Route: 065
  2. LAMOTRIGIN [Interacting]
     Active Substance: LAMOTRIGINE
     Indication: PSYCHOTIC DISORDER
     Route: 065
  3. CHAMPIX [Interacting]
     Active Substance: VARENICLINE TARTRATE
     Dosage: UNK

REACTIONS (4)
  - Abnormal behaviour [Unknown]
  - Drug interaction [Unknown]
  - Loss of consciousness [Unknown]
  - Physical assault [Unknown]
